FAERS Safety Report 25049888 (Version 1)
Quarter: 2025Q1

REPORT INFORMATION
  Report Type: Spontaneous
  Country: US (occurrence: US)
  Receive Date: 20250307
  Receipt Date: 20250307
  Transmission Date: 20250409
  Serious: Yes (Hospitalization, Other)
  Sender: AMGEN
  Company Number: US-AMGEN-USASP2025039056

PATIENT
  Sex: Male

DRUGS (10)
  1. PANITUMUMAB [Suspect]
     Active Substance: PANITUMUMAB
     Indication: Rectosigmoid cancer metastatic
     Route: 065
     Dates: start: 20190425
  2. PANITUMUMAB [Suspect]
     Active Substance: PANITUMUMAB
     Route: 065
     Dates: start: 20220604, end: 20220727
  3. PANITUMUMAB [Suspect]
     Active Substance: PANITUMUMAB
     Route: 065
     Dates: start: 20220908, end: 20220922
  4. BEVACIZUMAB [Suspect]
     Active Substance: BEVACIZUMAB
     Indication: Rectosigmoid cancer metastatic
     Route: 065
     Dates: start: 20190930
  5. LEUCOVORIN [Suspect]
     Active Substance: LEUCOVORIN\LEUCOVORIN CALCIUM
     Indication: Rectosigmoid cancer metastatic
     Route: 065
     Dates: start: 20190425
  6. FLUOROURACIL [Suspect]
     Active Substance: FLUOROURACIL
     Indication: Rectosigmoid cancer metastatic
     Route: 065
     Dates: start: 20190425
  7. IRINOTECAN [Suspect]
     Active Substance: IRINOTECAN
     Indication: Rectosigmoid cancer metastatic
     Route: 065
     Dates: start: 20190425, end: 202209
  8. OXALIPLATIN [Suspect]
     Active Substance: OXALIPLATIN
     Indication: Rectosigmoid cancer metastatic
     Route: 065
     Dates: start: 20190425
  9. CAPECITABINE [Suspect]
     Active Substance: CAPECITABINE
     Indication: Product used for unknown indication
     Dosage: 1000 MILLIGRAM, BID, 2 WEEKS ON STOP MAR/2022, 1 WEEK OFF/3/11/24: CYCLE 1 CAPECITABINE WITH BEV
     Route: 065
     Dates: start: 20210205
  10. ROMIPLOSTIM [Concomitant]
     Active Substance: ROMIPLOSTIM
     Dosage: UNK UNK, QWK, AS OUTPATIENT
     Route: 065

REACTIONS (6)
  - Cholangitis [Unknown]
  - Rectosigmoid cancer metastatic [Unknown]
  - Renal vein thrombosis [Unknown]
  - Hydronephrosis [Unknown]
  - Rash [Unknown]
  - Platelet count decreased [Unknown]

NARRATIVE: CASE EVENT DATE: 20190930
